FAERS Safety Report 21770464 (Version 1)
Quarter: 2022Q4

REPORT INFORMATION
  Report Type: Spontaneous
  Country: AT (occurrence: AT)
  Receive Date: 20221223
  Receipt Date: 20221223
  Transmission Date: 20230113
  Serious: Yes (Other)
  Sender: FDA-Public Use
  Company Number: AT-SERVIER-S21000314

PATIENT
  Age: 62 Year
  Sex: Female
  Weight: 80 kg

DRUGS (10)
  1. AVASTIN [Suspect]
     Active Substance: BEVACIZUMAB
     Indication: Colon cancer
     Route: 065
     Dates: start: 202008, end: 202011
  2. AVASTIN [Suspect]
     Active Substance: BEVACIZUMAB
     Route: 065
     Dates: start: 201910, end: 201912
  3. AVASTIN [Suspect]
     Active Substance: BEVACIZUMAB
     Route: 065
     Dates: start: 202003, end: 202006
  4. LONSURF [Suspect]
     Active Substance: TIPIRACIL HYDROCHLORIDE\TRIFLURIDINE
     Indication: Colon cancer
     Route: 065
     Dates: start: 202003, end: 202006
  5. LONSURF [Suspect]
     Active Substance: TIPIRACIL HYDROCHLORIDE\TRIFLURIDINE
     Dosage: 115 MG, QD
     Route: 065
     Dates: start: 201911, end: 201912
  6. LONSURF [Suspect]
     Active Substance: TIPIRACIL HYDROCHLORIDE\TRIFLURIDINE
     Dosage: 115 MG, QD
     Route: 065
     Dates: start: 202002, end: 202002
  7. LONSURF [Suspect]
     Active Substance: TIPIRACIL HYDROCHLORIDE\TRIFLURIDINE
     Dosage: 65 MG (35 MG/M2), BID, ON DAYS 1-5 AND 8-12 OF EACH 28-DAY CYCLE
     Route: 065
     Dates: start: 201710, end: 201810
  8. LONSURF [Suspect]
     Active Substance: TIPIRACIL HYDROCHLORIDE\TRIFLURIDINE
     Dosage: 65 MG (35 MG/M2), BID, ON DAYS 1-5 AND 8-12 OF EACH 28-DAY CYCLE
     Route: 065
     Dates: start: 201910, end: 201910
  9. LONSURF [Suspect]
     Active Substance: TIPIRACIL HYDROCHLORIDE\TRIFLURIDINE
     Dosage: 100 MG, QD
     Route: 065
     Dates: start: 202008, end: 202011
  10. REGORAFENIB [Concomitant]
     Active Substance: REGORAFENIB
     Indication: Colon cancer
     Dates: start: 201907, end: 201910

REACTIONS (11)
  - Neutropenia [Recovered/Resolved]
  - Pneumonia [Recovered/Resolved]
  - Leukopenia [Recovered/Resolved]
  - Pyrexia [Recovered/Resolved]
  - Nausea [Unknown]
  - Diarrhoea [Unknown]
  - Disease progression [Unknown]
  - Wound infection [Unknown]
  - C-reactive protein increased [Recovered/Resolved]
  - Pyrexia [Recovered/Resolved]
  - Off label use [Unknown]

NARRATIVE: CASE EVENT DATE: 20181001
